FAERS Safety Report 6871959-8 (Version None)
Quarter: 2010Q3

REPORT INFORMATION
  Report Type: 
  Country: None (occurrence: None)
  Receive Date: 20100723
  Receipt Date: 20100707
  Transmission Date: 20110219
  Serious: No
  Sender: FDA-Public Use
  Company Number: US-ROXANE LABORATORIES, INC.-2010-RO-00803RO

PATIENT
  Sex: Male

DRUGS (2)
  1. PREDNISONE TAB [Suspect]
     Indication: HERPES ZOSTER
  2. VALTREX [Concomitant]
     Indication: HERPES ZOSTER

REACTIONS (1)
  - DRUG INEFFECTIVE [None]
